FAERS Safety Report 19970684 (Version 1)
Quarter: 2021Q4

REPORT INFORMATION
  Report Type: Report from Study
  Country: MX (occurrence: MX)
  Receive Date: 20211019
  Receipt Date: 20211019
  Transmission Date: 20220303
  Serious: Yes (Other)
  Sender: FDA-Public Use
  Company Number: MX-NOVARTISPH-NVSC2021MX237979

PATIENT
  Sex: Male
  Weight: 79 kg

DRUGS (2)
  1. METFORMIN HYDROCHLORIDE\VILDAGLIPTIN [Suspect]
     Active Substance: METFORMIN HYDROCHLORIDE\VILDAGLIPTIN
     Indication: Diabetes mellitus
     Dosage: 1 DF, BID (50/500 MG) STARTED APPROXIMATELY 7 YEARS AGO
     Route: 048
  2. METFORMIN HYDROCHLORIDE\VILDAGLIPTIN [Suspect]
     Active Substance: METFORMIN HYDROCHLORIDE\VILDAGLIPTIN
     Dosage: 1 DF, BID (50/850MG), STARTED APPROXIMATELY 2 YEARS AGO
     Route: 048

REACTIONS (3)
  - Deafness [Not Recovered/Not Resolved]
  - Blood glucose increased [Unknown]
  - Intentional product use issue [Unknown]
